FAERS Safety Report 8084588-8 (Version None)
Quarter: 2012Q1

REPORT INFORMATION
  Report Type: 
  Country: None (occurrence: None)
  Receive Date: 20120128
  Receipt Date: 20110318
  Transmission Date: 20120608
  Serious: No
  Sender: FDA-Public Use
  Company Number: US-ABBOTT-11P-163-0712114-00

PATIENT
  Sex: Female
  Weight: 99.88 kg

DRUGS (6)
  1. LANTUS [Concomitant]
     Indication: DIABETES MELLITUS
     Route: 058
  2. HUMIRA [Suspect]
     Route: 058
     Dates: start: 20100101, end: 20110101
  3. HUMIRA [Suspect]
     Indication: PSORIASIS
     Route: 058
     Dates: start: 20080101, end: 20100101
  4. ACTONEL [Concomitant]
     Indication: OSTEOPOROSIS
     Route: 048
  5. ZIMS CRACK CREAM [Concomitant]
     Indication: DIABETES MELLITUS
     Route: 061
     Dates: start: 20100101
  6. HUMALOG [Concomitant]
     Indication: DIABETES MELLITUS
     Dosage: PER SLIDING SCALE
     Route: 058

REACTIONS (4)
  - SKIN FISSURES [None]
  - DRUG INEFFECTIVE [None]
  - GLYCOSYLATED HAEMOGLOBIN INCREASED [None]
  - OEDEMA PERIPHERAL [None]
